FAERS Safety Report 24353744 (Version 1)
Quarter: 2024Q3

REPORT INFORMATION
  Report Type: Spontaneous
  Country: US (occurrence: None)
  Receive Date: 20240920
  Receipt Date: 20240920
  Transmission Date: 20241017
  Serious: No
  Sender: Public
  Company Number: None

PATIENT
  Age: 73 Year
  Sex: Female
  Weight: 101.25 kg

DRUGS (13)
  1. SPIRONOLACTONE [Suspect]
     Active Substance: SPIRONOLACTONE
     Indication: Blood pressure measurement
     Dosage: 1 TABLET DAILY ORAL
     Route: 048
     Dates: start: 20240604, end: 20240614
  2. AMLODIPINE BESYLATE [Suspect]
     Active Substance: AMLODIPINE BESYLATE
     Indication: Blood pressure measurement
     Dosage: 1 TABLET DAILY ORAL
     Route: 048
  3. TRIAMTERENE [Suspect]
     Active Substance: TRIAMTERENE
  4. HYDROCHLOROTHIAZIDE [Suspect]
     Active Substance: HYDROCHLOROTHIAZIDE
  5. METOPROLOL [Suspect]
     Active Substance: METOPROLOL
  6. LOSARTAN [Suspect]
     Active Substance: LOSARTAN\LOSARTAN POTASSIUM
  7. NIFEDIPINE [Concomitant]
     Active Substance: NIFEDIPINE
  8. VITAMINS D [Concomitant]
  9. C [Concomitant]
  10. CAL [Concomitant]
  11. MAG [Concomitant]
  12. TYLENOL [Concomitant]
     Active Substance: ACETAMINOPHEN
  13. ASPIRIN [Concomitant]
     Active Substance: ASPIRIN

REACTIONS (4)
  - Blood pressure increased [None]
  - Drug ineffective [None]
  - Fear of disease [None]
  - Malaise [None]

NARRATIVE: CASE EVENT DATE: 20240204
